FAERS Safety Report 9730875 (Version 1)
Quarter: 2013Q4

REPORT INFORMATION
  Report Type: Spontaneous
  Country: US (occurrence: US)
  Receive Date: 20131205
  Receipt Date: 20131205
  Transmission Date: 20140711
  Serious: Yes (Death)
  Sender: FDA-Public Use
  Company Number: US-ROXANE LABORATORIES, INC.-2013-RO-01894RO

PATIENT
  Sex: Female

DRUGS (2)
  1. AMLODIPINE [Suspect]
  2. NEBIVOLOL [Suspect]

REACTIONS (1)
  - Adverse event [Fatal]
